FAERS Safety Report 8985181 (Version 2)
Quarter: 2014Q1

REPORT INFORMATION
  Report Type: Report from Study
  Country: US (occurrence: US)
  Receive Date: 20121226
  Receipt Date: 20140324
  Transmission Date: 20141002
  Serious: Yes (Other)
  Sender: FDA-Public Use
  Company Number: US-009507513-1212USA008558

PATIENT
  Age: 58 Year
  Sex: Male
  Weight: 90.7 kg

DRUGS (4)
  1. PEGINTERFERON ALFA-2B [Suspect]
     Indication: HEPATITIS C
     Dosage: 150 MICROGRAM, QW
     Route: 058
     Dates: start: 20121206
  2. PEGINTERFERON ALFA-2B [Suspect]
     Indication: HIV INFECTION
  3. REBETOL [Suspect]
     Indication: HIV INFECTION
     Dosage: 600 MG, BID
     Route: 048
     Dates: start: 20121206
  4. REBETOL [Suspect]
     Indication: HEPATITIS C

REACTIONS (1)
  - Lipase increased [Recovered/Resolved]
